FAERS Safety Report 14352469 (Version 1)
Quarter: 2018Q1

REPORT INFORMATION
  Report Type: Spontaneous
  Country: FR (occurrence: FR)
  Receive Date: 20180104
  Receipt Date: 20180104
  Transmission Date: 20180509
  Serious: Yes (Hospitalization)
  Sender: FDA-Public Use
  Company Number: FR-PFIZER INC-2017555862

PATIENT
  Age: 43 Year
  Sex: Female
  Weight: 109 kg

DRUGS (15)
  1. PERFALGAN [Concomitant]
     Active Substance: ACETAMINOPHEN
  2. MIDAZOLAM [Concomitant]
     Active Substance: MIDAZOLAM HYDROCHLORIDE
  3. SUFENTANIL [Concomitant]
     Active Substance: SUFENTANIL
  4. LEVOTHYROX [Concomitant]
     Active Substance: LEVOTHYROXINE
  5. BETADINE [Concomitant]
     Active Substance: POVIDONE-IODINE
  6. KETAMINE [Concomitant]
     Active Substance: KETAMINE
  7. CHLORMADINONE ACETATE [Concomitant]
     Active Substance: CHLORMADINONE ACETATE
  8. DAFALGAN CODEINE [Suspect]
     Active Substance: ACETAMINOPHEN\CODEINE PHOSPHATE
     Indication: POSTOPERATIVE ANALGESIA
     Dosage: UNK
     Route: 048
     Dates: start: 20170609, end: 20170612
  9. SEVOFLURANE BAXTER [Concomitant]
     Active Substance: SEVOFLURANE
  10. DEXAMETHASONE. [Concomitant]
     Active Substance: DEXAMETHASONE
  11. IBUPROFEN. [Suspect]
     Active Substance: IBUPROFEN
     Indication: POSTOPERATIVE ANALGESIA
     Dosage: UNK
     Route: 048
     Dates: start: 20170613, end: 20170614
  12. ECONAZOLE [Suspect]
     Active Substance: ECONAZOLE
     Indication: INTERTRIGO
     Dosage: UNK
     Route: 061
     Dates: start: 201706, end: 201706
  13. ARNICA MONTANA. [Suspect]
     Active Substance: HOMEOPATHICS
     Indication: POSTOPERATIVE ANALGESIA
     Dosage: UNK
     Route: 048
     Dates: start: 20170609, end: 20170612
  14. CHLORHEXIDINE DIGLUCONATE [Concomitant]
     Active Substance: CHLORHEXIDINE
  15. PROPOFOL. [Concomitant]
     Active Substance: PROPOFOL

REACTIONS (5)
  - Dermatitis bullous [Recovered/Resolved]
  - Rash pustular [Recovered/Resolved]
  - Pruritus [Recovered/Resolved]
  - Rash maculo-papular [Recovered/Resolved]
  - Eosinophilia [Recovered/Resolved]

NARRATIVE: CASE EVENT DATE: 20170617
